FAERS Safety Report 11123842 (Version 2)
Quarter: 2015Q2

REPORT INFORMATION
  Report Type: Spontaneous
  Country: US (occurrence: US)
  Receive Date: 20150520
  Receipt Date: 20150616
  Transmission Date: 20150821
  Serious: Yes (Other)
  Sender: FDA-Public Use
  Company Number: US-ASTRAZENECA-2015SE44292

PATIENT
  Age: 79 Year
  Sex: Male
  Weight: 89.4 kg

DRUGS (5)
  1. DYAZIDE [Concomitant]
     Active Substance: HYDROCHLOROTHIAZIDE\TRIAMTERENE
     Indication: OEDEMA
     Dosage: 37.5/25
     Route: 048
  2. DOXAZOSIN [Concomitant]
     Active Substance: DOXAZOSIN\DOXAZOSIN MESYLATE
     Indication: BENIGN PROSTATIC HYPERPLASIA
     Route: 048
     Dates: start: 200610
  3. BISOPROLOL HCTZ [Concomitant]
     Indication: HYPERTENSION
     Dosage: 2.5/6.25
     Route: 048
     Dates: start: 200610
  4. CRESTOR [Suspect]
     Active Substance: ROSUVASTATIN CALCIUM
     Indication: BLOOD CHOLESTEROL ABNORMAL
     Dosage: 10 MG Q-CYCLE
     Route: 048
     Dates: start: 20120823, end: 20150401
  5. CRESTOR [Suspect]
     Active Substance: ROSUVASTATIN CALCIUM
     Indication: BLOOD CHOLESTEROL ABNORMAL
     Dosage: EVERY CYCLE
     Route: 048
     Dates: start: 20130214

REACTIONS (11)
  - Granuloma [Unknown]
  - Blood cholesterol increased [Unknown]
  - Blood glucose abnormal [Unknown]
  - Hepatic steatosis [Unknown]
  - Renal cyst [Unknown]
  - Hepatitis B antibody positive [Unknown]
  - Chromaturia [Unknown]
  - Hepatitis A antibody positive [Unknown]
  - Faeces discoloured [Unknown]
  - Splenic calcification [Unknown]
  - Jaundice [Recovered/Resolved]

NARRATIVE: CASE EVENT DATE: 201504
